FAERS Safety Report 12437718 (Version 2)
Quarter: 2016Q3

REPORT INFORMATION
  Report Type: Report from Study
  Country: US (occurrence: US)
  Receive Date: 20160606
  Receipt Date: 20160727
  Transmission Date: 20161109
  Serious: Yes (Hospitalization, Other)
  Sender: FDA-Public Use
  Company Number: US-JNJFOC-20160602335

PATIENT
  Age: 70 Year
  Sex: Female

DRUGS (2)
  1. IMBRUVICA [Suspect]
     Active Substance: IBRUTINIB
     Indication: NON-HODGKIN^S LYMPHOMA
     Route: 048
     Dates: start: 20160719
  2. IMBRUVICA [Suspect]
     Active Substance: IBRUTINIB
     Indication: NON-HODGKIN^S LYMPHOMA
     Route: 048
     Dates: start: 20150117

REACTIONS (10)
  - Hip fracture [Unknown]
  - Fall [Recovered/Resolved]
  - Blood count abnormal [Unknown]
  - Spinal fracture [Unknown]
  - Off label use [Not Recovered/Not Resolved]
  - Muscle spasms [None]
  - Arthropod bite [None]
  - Weight increased [None]
  - Product use issue [Not Recovered/Not Resolved]
  - Dry mouth [None]

NARRATIVE: CASE EVENT DATE: 201501
